FAERS Safety Report 7342528-0 (Version None)
Quarter: 2011Q1

REPORT INFORMATION
  Report Type: 
  Country: None (occurrence: None)
  Receive Date: 20110310
  Receipt Date: 20110301
  Transmission Date: 20110831
  Serious: Yes (Other)
  Sender: FDA-Public Use
  Company Number: NO-BAYER-2011-018861

PATIENT
  Sex: Female

DRUGS (1)
  1. MIRENA [Suspect]
     Indication: CONTRACEPTION
     Dosage: UNK
     Dates: start: 20110223

REACTIONS (7)
  - DIZZINESS [None]
  - URINARY INCONTINENCE [None]
  - PROCEDURAL PAIN [None]
  - DEVICE DIFFICULT TO USE [None]
  - NAUSEA [None]
  - SYNCOPE [None]
  - VOMITING [None]
